FAERS Safety Report 4266082-5 (Version None)
Quarter: 2004Q1

REPORT INFORMATION
  Report Type: 
  Country: None (occurrence: None)
  Receive Date: 20031125
  Receipt Date: 20030605
  Transmission Date: 20041129
  Serious: Yes (Other)
  Sender: FDA-Public Use
  Company Number: US-JNJFOC-20030600362

PATIENT
  Age: 88 Year
  Sex: Female
  Weight: 66.2252 kg

DRUGS (13)
  1. LEVAQUIN [Suspect]
     Indication: UROSEPSIS
     Dosage: 500 MG
  2. PLAVIX [Concomitant]
  3. IMDUR [Concomitant]
  4. IRON (IRON) [Concomitant]
  5. LOPRESSOR [Concomitant]
  6. ATORVENT INHALER (IPRATROP IUM BROMIDE) [Concomitant]
  7. VENTOLIN INHALER (SALBUTAMOL) [Concomitant]
  8. MEGACE [Concomitant]
  9. REMERON [Concomitant]
  10. DIGOXIN [Concomitant]
  11. REGLAN [Concomitant]
  12. PROZAC [Concomitant]
  13. COLCHICINE (COLCHICINE) [Concomitant]

REACTIONS (2)
  - PLATELET COUNT DECREASED [None]
  - WHITE BLOOD CELL COUNT DECREASED [None]
